FAERS Safety Report 11948117 (Version 1)
Quarter: 2016Q1

REPORT INFORMATION
  Report Type: Report from Study
  Country: US (occurrence: US)
  Receive Date: 20160125
  Receipt Date: 20160125
  Transmission Date: 20160526
  Serious: Yes (Hospitalization, Other)
  Sender: FDA-Public Use
  Company Number: US-ASTELLAS-2016US002741

PATIENT
  Age: 51 Year
  Sex: Male

DRUGS (5)
  1. ERLOTINIB [Suspect]
     Active Substance: ERLOTINIB
     Indication: HEREDITARY LEIOMYOMATOSIS RENAL CELL CARCINOMA
  2. BEVACIZUMAB [Suspect]
     Active Substance: BEVACIZUMAB
     Indication: METASTATIC RENAL CELL CARCINOMA
     Route: 065
     Dates: start: 20151127
  3. ERLOTINIB [Suspect]
     Active Substance: ERLOTINIB
     Indication: METASTATIC RENAL CELL CARCINOMA
     Route: 065
     Dates: start: 20151207
  4. PANTOPRAZOLE [Concomitant]
     Active Substance: PANTOPRAZOLE SODIUM
     Indication: PRODUCT USED FOR UNKNOWN INDICATION
     Dosage: UNK UNK, UNKNOWN FREQ.
     Route: 065
  5. BEVACIZUMAB [Suspect]
     Active Substance: BEVACIZUMAB
     Indication: HEREDITARY LEIOMYOMATOSIS RENAL CELL CARCINOMA

REACTIONS (3)
  - Pyloric stenosis [Unknown]
  - Gastric ulcer [Unknown]
  - Duodenal stenosis [Unknown]

NARRATIVE: CASE EVENT DATE: 20160101
